FAERS Safety Report 8270618-7 (Version None)
Quarter: 2012Q2

REPORT INFORMATION
  Report Type: 
  Country: None (occurrence: None)
  Receive Date: 20120406
  Receipt Date: 20120330
  Transmission Date: 20120825
  Serious: Yes (Other)
  Sender: FDA-Public Use
  Company Number: IMP_05830_2012

PATIENT
  Age: 22 Year
  Sex: Male

DRUGS (1)
  1. METFORMIN HYDROCHLORIDE [Suspect]
     Indication: TYPE 2 DIABETES MELLITUS
     Dosage: (48,000 MG [NOT THE PRESCRIBED AMOUNT]), (850 MG / DAY)

REACTIONS (10)
  - INCORRECT DOSE ADMINISTERED [None]
  - VOMITING [None]
  - BLOOD CREATININE INCREASED [None]
  - DIARRHOEA [None]
  - HAEMODIALYSIS [None]
  - SUICIDE ATTEMPT [None]
  - RENAL IMPAIRMENT [None]
  - BLOOD PH DECREASED [None]
  - ALTERED STATE OF CONSCIOUSNESS [None]
  - PROTHROMBIN TIME PROLONGED [None]
